FAERS Safety Report 17707731 (Version 1)
Quarter: 2020Q2

REPORT INFORMATION
  Report Type: Spontaneous
  Country: FR (occurrence: FR)
  Receive Date: 20200424
  Receipt Date: 20200424
  Transmission Date: 20200714
  Serious: Yes (Hospitalization)
  Sender: FDA-Public Use
  Company Number: FR-ELI_LILLY_AND_COMPANY-FR202004005221

PATIENT
  Age: 37 Year
  Sex: Female

DRUGS (4)
  1. STAGID [Concomitant]
     Active Substance: METFORMIN PAMOATE
     Indication: DIABETES MELLITUS
     Dosage: 700 MG, DAILY
     Route: 048
  2. ZYPADHERA [Suspect]
     Active Substance: OLANZAPINE PAMOATE
     Indication: SCHIZOPHRENIA
     Dosage: 300 MG, EVERY 28 DAYS
     Route: 030
     Dates: start: 2017, end: 20200131
  3. ZYPADHERA [Suspect]
     Active Substance: OLANZAPINE PAMOATE
     Indication: SCHIZOPHRENIA
     Dosage: 300 MG, EVERY 28 DAYS
     Route: 030
     Dates: start: 2017, end: 20200131
  4. ZYPADHERA [Suspect]
     Active Substance: OLANZAPINE PAMOATE
     Indication: SCHIZOPHRENIA
     Dosage: 300 MG, EVERY 28 DAYS
     Route: 030
     Dates: start: 2017, end: 20200131

REACTIONS (2)
  - Confusional state [Recovered/Resolved]
  - Hemianopia [Recovered/Resolved]

NARRATIVE: CASE EVENT DATE: 20200131
